FAERS Safety Report 8093221-0 (Version None)
Quarter: 2012Q1

REPORT INFORMATION
  Report Type: 
  Country: None (occurrence: None)
  Receive Date: 20120128
  Receipt Date: 20110901
  Transmission Date: 20120608
  Serious: No
  Sender: FDA-Public Use
  Company Number: US-ABBOTT-11P-163-0705554-00

PATIENT
  Age: 45 Year
  Sex: Female

DRUGS (13)
  1. LORTAB [Concomitant]
     Indication: PAIN
     Dosage: ONE AS NEEDED
  2. LOVAZA [Concomitant]
     Indication: PRODUCT USED FOR UNKNOWN INDICATION
     Dosage: AS DIRECTED ON BOTTLE DAILY
  3. HUMIRA [Suspect]
     Indication: PSORIASIS
     Dates: start: 20110101, end: 20110815
  4. LISINOPRIL [Concomitant]
     Indication: HYPERTENSION
  5. ADIPEX [Concomitant]
     Indication: WEIGHT DECREASED
     Dosage: EVERY DAY
     Route: 048
  6. HYDROCHLOROTHIAZIDE [Concomitant]
     Indication: BLOOD PRESSURE
     Route: 048
     Dates: start: 20090101
  7. CLONAZEPAM [Concomitant]
     Indication: INSOMNIA
     Dosage: 1/2 TABLET AT NIGHT
     Route: 048
  8. IBUPROFEN [Concomitant]
     Indication: MUSCLE SPASMS
     Dosage: AS NEEDED
  9. ASPIRIN [Concomitant]
     Indication: ILL-DEFINED DISORDER
     Dosage: FOR 3 YEARS
  10. ACETAMINOPHEN [Concomitant]
     Indication: PRODUCT USED FOR UNKNOWN INDICATION
     Dosage: AS REQUIRED
  11. HUMIRA [Suspect]
     Dosage: DECREASED TO 3 TO 4 WEEKS APART
     Dates: end: 20110815
  12. PROZAC [Concomitant]
     Indication: DEPRESSION
     Route: 048
     Dates: start: 20060101
  13. OTC DECONGESTANTS [Concomitant]
     Indication: SEASONAL ALLERGY

REACTIONS (18)
  - INFLUENZA LIKE ILLNESS [None]
  - INFLUENZA [None]
  - COUGH [None]
  - MUSCULOSKELETAL DISCOMFORT [None]
  - ASTHENIA [None]
  - FEELING ABNORMAL [None]
  - DIARRHOEA [None]
  - ABDOMINAL PAIN UPPER [None]
  - PYREXIA [None]
  - DYSPHONIA [None]
  - CHILLS [None]
  - SINUS CONGESTION [None]
  - OROPHARYNGEAL PAIN [None]
  - HYPERSENSITIVITY [None]
  - NAUSEA [None]
  - HEADACHE [None]
  - NASOPHARYNGITIS [None]
  - ARTHRALGIA [None]
